FAERS Safety Report 7958222-9 (Version None)
Quarter: 2011Q4

REPORT INFORMATION
  Report Type: 
  Country: None (occurrence: None)
  Receive Date: 20111205
  Receipt Date: 20111201
  Transmission Date: 20120403
  Serious: Yes (Hospitalization)
  Sender: FDA-Public Use
  Company Number: IT-ROCHE-1018284

PATIENT
  Sex: Female

DRUGS (12)
  1. LEVOTHYROXINE SODIUM [Concomitant]
     Route: 048
     Dates: start: 20090406, end: 20100927
  2. PLAQUENIL [Concomitant]
     Route: 048
     Dates: start: 20080204
  3. AXAGON [Concomitant]
     Route: 048
     Dates: start: 20090909
  4. NERIXIA [Concomitant]
     Route: 030
     Dates: start: 20070108
  5. GASTRO GEL [Concomitant]
     Route: 048
     Dates: start: 20090703
  6. MABTHERA [Suspect]
     Indication: RHEUMATOID ARTHRITIS
     Route: 042
     Dates: start: 20080528, end: 20100621
  7. MEDROL [Suspect]
     Indication: RHEUMATOID ARTHRITIS
     Route: 048
     Dates: start: 20061207
  8. ARCOXIA [Concomitant]
     Route: 048
     Dates: start: 20090703
  9. DIBASE [Concomitant]
     Route: 048
     Dates: start: 20061207
  10. DIDROGYL [Concomitant]
     Route: 048
     Dates: start: 20080204
  11. TRIATEC HCT [Concomitant]
     Route: 048
     Dates: start: 20090703
  12. IMOVANE [Concomitant]
     Route: 048
     Dates: start: 20090909

REACTIONS (1)
  - OVARIAN CANCER [None]
